FAERS Safety Report 10189627 (Version 2)
Quarter: 2014Q2

REPORT INFORMATION
  Report Type: Spontaneous
  Country: JP (occurrence: JP)
  Receive Date: 20140522
  Receipt Date: 20140610
  Transmission Date: 20141212
  Serious: Yes (Hospitalization)
  Sender: FDA-Public Use
  Company Number: JP-GLAXOSMITHKLINE-B0995239A

PATIENT
  Age: 7 Year
  Sex: Male
  Weight: 20 kg

DRUGS (5)
  1. RELENZA [Suspect]
     Indication: INFLUENZA
     Dosage: 10MG TWICE PER DAY
     Route: 055
     Dates: start: 20140214, end: 20140214
  2. ALESION [Concomitant]
     Dosage: 3MG TWICE PER DAY
     Route: 048
     Dates: start: 20140214
  3. ASVERIN [Concomitant]
     Dosage: 20MG TWICE PER DAY
     Route: 048
  4. MUCODYNE [Concomitant]
     Dosage: 200MG TWICE PER DAY
     Route: 048
  5. TRANEXAMIC ACID [Concomitant]
     Dosage: 125MG TWICE PER DAY
     Route: 048

REACTIONS (12)
  - Anaphylactic reaction [Recovered/Resolved]
  - Croup infectious [Recovered/Resolved]
  - Laryngeal oedema [Recovered/Resolved]
  - Pallor [Recovered/Resolved]
  - Wheezing [Recovered/Resolved]
  - Cough [Recovered/Resolved]
  - Asthma [Recovered/Resolved]
  - Face oedema [Recovered/Resolved]
  - Oropharyngeal pain [Recovered/Resolved]
  - Pyrexia [Recovered/Resolved]
  - Productive cough [Recovered/Resolved]
  - Bronchospasm [Recovered/Resolved]
